FAERS Safety Report 25854414 (Version 1)
Quarter: 2025Q3

REPORT INFORMATION
  Report Type: Spontaneous
  Country: US (occurrence: US)
  Receive Date: 20250927
  Receipt Date: 20250927
  Transmission Date: 20251021
  Serious: Yes (Other)
  Sender: STRIDES
  Company Number: US-STRIDES ARCOLAB LIMITED-2025SP007808

PATIENT
  Age: 43 Year
  Sex: Female

DRUGS (4)
  1. PREDNISOLONE [Suspect]
     Active Substance: PREDNISOLONE
     Indication: Retinal vascular disorder
     Route: 048
  2. PREDNISOLONE [Suspect]
     Active Substance: PREDNISOLONE
     Indication: Choroiditis
  3. PEGCETACOPLAN [Concomitant]
     Active Substance: PEGCETACOPLAN
     Indication: Stargardt^s disease
     Route: 065
  4. IZERVAY [Concomitant]
     Active Substance: AVACINCAPTAD PEGOL SODIUM
     Indication: Stargardt^s disease

REACTIONS (1)
  - Drug ineffective for unapproved indication [Unknown]
